FAERS Safety Report 21862267 (Version 1)
Quarter: 2023Q1

REPORT INFORMATION
  Report Type: Spontaneous
  Country: US (occurrence: US)
  Receive Date: 20230114
  Receipt Date: 20230114
  Transmission Date: 20230418
  Serious: Yes (Hospitalization)
  Sender: FDA-Public Use
  Company Number: US-STRIDES ARCOLAB LIMITED-2023SP000669

PATIENT
  Age: 57 Year
  Sex: Male

DRUGS (9)
  1. LORAZEPAM [Suspect]
     Active Substance: LORAZEPAM
     Indication: Catatonia
     Dosage: UNK
     Route: 065
  2. LORAZEPAM [Suspect]
     Active Substance: LORAZEPAM
     Dosage: 6 MILLIGRAM/DAY
     Route: 065
  3. LORAZEPAM [Suspect]
     Active Substance: LORAZEPAM
     Dosage: UNK (TAPERED TO DISCONTINUATION)
     Route: 065
  4. LORAZEPAM [Suspect]
     Active Substance: LORAZEPAM
     Dosage: UNK (NOT TOLERATE LORAZEPAM GREATER THAN 1MG)
     Route: 065
  5. LORAZEPAM [Suspect]
     Active Substance: LORAZEPAM
     Dosage: UNK (GRADUALLY TOLERATED HIGHER DOSES AND RETURN TO BASELINE AFTER 3 WEEKS)
     Route: 065
  6. MEMANTINE [Suspect]
     Active Substance: MEMANTINE
     Indication: Catatonia
     Dosage: UNK
     Route: 065
  7. LURASIDONE [Concomitant]
     Active Substance: LURASIDONE
     Indication: Bipolar disorder
     Dosage: 40 MILLIGRAM/DAY
     Route: 065
  8. LURASIDONE [Concomitant]
     Active Substance: LURASIDONE
     Dosage: 60 MILLIGRAM/DAY
     Route: 065
  9. LURASIDONE [Concomitant]
     Active Substance: LURASIDONE
     Dosage: UNK (DOSE REDUCED)
     Route: 065

REACTIONS (2)
  - Bradycardia [Unknown]
  - Off label use [Unknown]
